FAERS Safety Report 17420485 (Version 1)
Quarter: 2020Q1

REPORT INFORMATION
  Report Type: Report from Study
  Country: JP (occurrence: JP)
  Receive Date: 20200214
  Receipt Date: 20200214
  Transmission Date: 20200409
  Serious: Yes (Death, Other)
  Sender: FDA-Public Use
  Company Number: JP-ACTELION-A-CH2018-169090

PATIENT
  Age: 55 Year
  Sex: Male

DRUGS (10)
  1. NEORAL [Concomitant]
     Active Substance: CYCLOSPORINE
  2. ASVERIN [Concomitant]
  3. CARBOCISTEINE [Concomitant]
     Active Substance: CARBOCYSTEINE
     Indication: INTERSTITIAL LUNG DISEASE
     Dosage: 500 MG
     Route: 048
     Dates: start: 20160816, end: 20190604
  4. PREDONINE [Concomitant]
     Active Substance: PREDNISOLONE
  5. REVATIO [Concomitant]
     Active Substance: SILDENAFIL CITRATE
  6. OPSUMIT [Suspect]
     Active Substance: MACITENTAN
     Indication: PULMONARY ARTERIAL HYPERTENSION
     Dosage: 10 MG, QD
     Route: 048
     Dates: start: 20171017, end: 20171113
  7. OPSUMIT [Suspect]
     Active Substance: MACITENTAN
     Dosage: 5 MG, QD
     Route: 048
     Dates: start: 20170725, end: 20171016
  8. OPSUMIT [Suspect]
     Active Substance: MACITENTAN
     Dosage: 5 MG, QD
     Route: 048
     Dates: start: 20171114, end: 20190604
  9. OXYGEN. [Concomitant]
     Active Substance: OXYGEN
     Route: 055
  10. SPIRONOLACTONE. [Concomitant]
     Active Substance: SPIRONOLACTONE
     Indication: PULMONARY ARTERIAL HYPERTENSION
     Dosage: UNK
     Route: 048
     Dates: end: 20190604

REACTIONS (8)
  - Cardiac failure congestive [Recovering/Resolving]
  - Generalised oedema [Recovering/Resolving]
  - Cardio-respiratory arrest [Fatal]
  - Dyspnoea exertional [Not Recovered/Not Resolved]
  - Loss of consciousness [Fatal]
  - N-terminal prohormone brain natriuretic peptide increased [Recovering/Resolving]
  - Anaemia [Not Recovered/Not Resolved]
  - Pulmonary hypertension [Fatal]

NARRATIVE: CASE EVENT DATE: 20171017
